FAERS Safety Report 7232134-0 (Version None)
Quarter: 2011Q1

REPORT INFORMATION
  Report Type: 
  Country: None (occurrence: None)
  Receive Date: 20110119
  Receipt Date: 20110107
  Transmission Date: 20110831
  Serious: Yes (Other)
  Sender: FDA-Public Use
  Company Number: US-BIOGENIDEC-2011BI001255

PATIENT
  Age: 53 Year
  Sex: Male
  Weight: 78 kg

DRUGS (13)
  1. PROMETHAZINE [Concomitant]
     Indication: NAUSEA
     Route: 048
  2. FLUOXETINE [Concomitant]
     Route: 048
  3. LAMOTRIGINE [Concomitant]
     Indication: CONVULSION PROPHYLAXIS
     Route: 048
  4. OXYBUTYNIN [Concomitant]
     Indication: BLADDER SPASM
     Route: 048
  5. PRILOSEC OTC [Concomitant]
     Route: 048
  6. DIAZEPAM [Concomitant]
     Route: 048
  7. TRAZODONE [Concomitant]
     Indication: SLEEP DISORDER
     Route: 048
  8. TYSABRI [Suspect]
     Indication: MULTIPLE SCLEROSIS
     Route: 042
     Dates: start: 20101111, end: 20110106
  9. FLOMAX [Concomitant]
     Indication: URINARY TRACT DISORDER
     Route: 048
  10. BACLOFEN [Concomitant]
     Indication: MUSCLE SPASTICITY
     Route: 048
  11. LYRICA [Concomitant]
     Indication: NEURALGIA
     Route: 048
  12. NAPROXEN [Concomitant]
     Route: 048
  13. LORTAB [Concomitant]
     Indication: NEURALGIA
     Route: 048

REACTIONS (5)
  - ANAPHYLACTIC REACTION [None]
  - GENERAL SYMPTOM [None]
  - HYPERSOMNIA [None]
  - RHONCHI [None]
  - CONVULSION [None]
